FAERS Safety Report 7116135-9 (Version None)
Quarter: 2010Q4

REPORT INFORMATION
  Report Type: 
  Country: None (occurrence: None)
  Receive Date: 20101122
  Receipt Date: 20101109
  Transmission Date: 20110411
  Serious: Yes (Other)
  Sender: FDA-Public Use
  Company Number: PHHY2010US78005

PATIENT

DRUGS (1)
  1. EXJADE [Suspect]

REACTIONS (6)
  - ABDOMINAL PAIN UPPER [None]
  - BLOOD URINE PRESENT [None]
  - DEHYDRATION [None]
  - HAEMATOCHEZIA [None]
  - NAUSEA [None]
  - VOMITING [None]
